FAERS Safety Report 7620201-9 (Version None)
Quarter: 2011Q3

REPORT INFORMATION
  Report Type: 
  Country: None (occurrence: None)
  Receive Date: 20110719
  Receipt Date: 20110705
  Transmission Date: 20111222
  Serious: Yes (Hospitalization, Other)
  Sender: FDA-Public Use
  Company Number: PHHY2011BR60261

PATIENT
  Sex: Male
  Weight: 62 kg

DRUGS (4)
  1. DIOVAN [Suspect]
     Indication: HYPERTENSION
     Dosage: 1 DF, DAILY
     Route: 048
  2. CIPROFIBRATE [Concomitant]
     Indication: BLOOD TRIGLYCERIDES
     Dosage: UNK UKN, UNK
  3. HYGROTON [Concomitant]
     Indication: HYPERTENSION
     Dosage: UNK UKN, UNK
  4. DIOVAN [Suspect]
     Dosage: 1.5 DF, DAILY
     Route: 048

REACTIONS (7)
  - THYROID DISORDER [None]
  - BLOOD PRESSURE FLUCTUATION [None]
  - VASCULAR INJURY [None]
  - MALAISE [None]
  - EPISTAXIS [None]
  - GASTROINTESTINAL PAIN [None]
  - WRONG TECHNIQUE IN DRUG USAGE PROCESS [None]
